FAERS Safety Report 6614033-8 (Version None)
Quarter: 2010Q1

REPORT INFORMATION
  Report Type: 
  Country: None (occurrence: None)
  Receive Date: 20100304
  Receipt Date: 20100224
  Transmission Date: 20100710
  Serious: Yes (Other)
  Sender: FDA-Public Use
  Company Number: JP-ASTRAZENECA-2010SE03090

PATIENT
  Age: 78 Year
  Sex: Male
  Weight: 41 kg

DRUGS (8)
  1. IRESSA [Suspect]
     Indication: LUNG ADENOCARCINOMA
     Route: 048
     Dates: start: 20100107, end: 20100114
  2. LOXONIN [Concomitant]
     Indication: CANCER PAIN
     Route: 048
     Dates: start: 20091226
  3. PURSENNID [Concomitant]
     Indication: CONSTIPATION
     Route: 048
     Dates: start: 20091226
  4. MAGLAX [Concomitant]
     Indication: CONSTIPATION
     Route: 048
     Dates: start: 20091226
  5. CODEINE SULFATE [Concomitant]
     Indication: LUNG ADENOCARCINOMA
     Route: 048
     Dates: start: 20091226
  6. HUSTAGIN [Concomitant]
     Indication: LUNG ADENOCARCINOMA
     Route: 048
     Dates: start: 20091226
  7. MUCOSTA [Concomitant]
     Indication: PROPHYLAXIS AGAINST GASTROINTESTINAL ULCER
     Route: 048
     Dates: start: 20100106
  8. BIOFERMIN [Concomitant]
     Indication: ABDOMINAL DISTENSION
     Route: 048
     Dates: start: 20100112

REACTIONS (4)
  - ABDOMINAL DISTENSION [None]
  - NEUTROPENIA [None]
  - PLATELET COUNT DECREASED [None]
  - PYREXIA [None]
